FAERS Safety Report 4393317-0 (Version None)
Quarter: 2004Q3

REPORT INFORMATION
  Report Type: 
  Country: None (occurrence: None)
  Receive Date: 20040701
  Receipt Date: 20040614
  Transmission Date: 20050211
  Serious: Yes (Hospitalization)
  Sender: FDA-Public Use
  Company Number: FR_040403842

PATIENT
  Age: 82 Year
  Sex: Female

DRUGS (4)
  1. FORTEO [Suspect]
     Indication: OSTEOPOROSIS
     Dosage: 20 UG DAY
     Dates: start: 20040321, end: 20040322
  2. SECTRAL [Concomitant]
  3. HYPERIUM (RILMENIDINE) [Concomitant]
  4. NICARDIPINE HCL [Concomitant]

REACTIONS (2)
  - FATIGUE [None]
  - HYPERTENSION [None]
